FAERS Safety Report 11691512 (Version 1)
Quarter: 2015Q4

REPORT INFORMATION
  Report Type: Spontaneous
  Country: JP (occurrence: JP)
  Receive Date: 20151102
  Receipt Date: 20151102
  Transmission Date: 20160304
  Serious: Yes (Death, Hospitalization)
  Sender: FDA-Public Use
  Company Number: PHJP1995JP001470

PATIENT
  Age: 33 Year
  Sex: Female

DRUGS (3)
  1. PREDNISOLONE. [Concomitant]
     Active Substance: PREDNISOLONE
     Indication: NASOPHARYNGITIS
     Route: 065
  2. CORTISOL//HYDROCORTISONE [Concomitant]
     Indication: PRODUCT USED FOR UNKNOWN INDICATION
     Dosage: UNK UKN, UNK
  3. VOLTAREN [Suspect]
     Active Substance: DICLOFENAC SODIUM
     Indication: PYREXIA
     Dosage: UNK UKN, UNK
     Route: 048
     Dates: start: 19930106

REACTIONS (12)
  - Liver disorder [Fatal]
  - Anaemia [Fatal]
  - Pleural effusion [Unknown]
  - Pyrexia [Recovered/Resolved]
  - Drug hypersensitivity [Unknown]
  - Generalised tonic-clonic seizure [Fatal]
  - Dyskinesia [Fatal]
  - Brain oedema [Fatal]
  - Hyperthermia [Unknown]
  - Back pain [Not Recovered/Not Resolved]
  - Pharyngeal disorder [Not Recovered/Not Resolved]
  - Rash generalised [Fatal]

NARRATIVE: CASE EVENT DATE: 19930106
